FAERS Safety Report 18035639 (Version 1)
Quarter: 2020Q3

REPORT INFORMATION
  Report Type: Spontaneous
  Country: US (occurrence: US)
  Receive Date: 20200717
  Receipt Date: 20200717
  Transmission Date: 20201103
  Serious: No
  Sender: FDA-Public Use
  Company Number: None

PATIENT
  Age: 30 Year
  Sex: Male
  Weight: 115 kg

DRUGS (7)
  1. REMDESIVIR. [Suspect]
     Active Substance: REMDESIVIR
     Indication: COVID-19
     Dosage: ?          OTHER FREQUENCY:200MGX1,100MGX4;?
     Route: 041
     Dates: start: 20200709, end: 20200713
  2. ACETAMINOPHEN 500MG TAB [Concomitant]
     Dates: start: 20200709, end: 20200709
  3. DEXAMETHASONE 6MG IV [Concomitant]
     Dates: start: 20200710, end: 20200714
  4. MUCINEX DM 600/30MG TAB SR [Concomitant]
     Dates: end: 20200714
  5. ONDANSETRON 4MG IV [Concomitant]
     Active Substance: ONDANSETRON
     Dates: start: 20200709, end: 20200714
  6. ENOXAPARIN 40MG SYRINGE [Concomitant]
     Active Substance: ENOXAPARIN
     Dates: end: 20200714
  7. ACETAMINOPHEN 325MG TAB [Concomitant]
     Dates: start: 20200709, end: 20200714

REACTIONS (2)
  - Alanine aminotransferase increased [None]
  - Aspartate aminotransferase increased [None]

NARRATIVE: CASE EVENT DATE: 20170714
